FAERS Safety Report 4382125-2 (Version None)
Quarter: 2004Q2

REPORT INFORMATION
  Report Type: 
  Country: None (occurrence: None)
  Receive Date: 20040603
  Receipt Date: 20030609
  Transmission Date: 20050107
  Serious: Yes (Hospitalization, Other)
  Sender: FDA-Public Use
  Company Number: 200312584US

PATIENT
  Age: 70 Year
  Sex: Male
  Weight: 130.45 kg

DRUGS (19)
  1. LOVENOX [Suspect]
     Indication: DEEP VENOUS THROMBOSIS PROPHYLAXIS
     Dosage: 140 MG BID SC
     Route: 058
     Dates: start: 20030219, end: 20030228
  2. LOVENOX [Suspect]
     Indication: PROPHYLAXIS
     Dosage: 120 MG BID SC
     Route: 058
     Dates: start: 20030312, end: 20030318
  3. INSULIN LISPRO [Concomitant]
  4. FLUNISOLIDE [Concomitant]
  5. METFORMIN HCL [Concomitant]
  6. POTASSIUM CHLORIDE [Concomitant]
  7. RANITIDINE [Concomitant]
  8. SALSALATE [Concomitant]
  9. SALBUTAMOL, IPRATROPIUM BROMIDE (SALBUTAMOL W/IPRATROPIUM BROMIDE) [Concomitant]
  10. ASPIRIN [Concomitant]
  11. DOCUSATE SODIUM [Concomitant]
  12. IRON SULFATETHIAMIN COMPOUND TAB [Concomitant]
  13. AMOXICILLIN, CLAVULANATE POTASSIUM (AMOXICILLIN W/CLAVULANATE POTASSIU [Concomitant]
  14. METOPROLOL TARTRATE [Concomitant]
  15. RABEPRAZOLE SODIUM [Concomitant]
  16. WARFARIN SODIUM [Concomitant]
  17. SUCRALFATE [Concomitant]
  18. LASIX [Concomitant]
  19. LISINOPRIL [Concomitant]

REACTIONS (3)
  - ABDOMINAL PAIN [None]
  - HAEMATOCRIT DECREASED [None]
  - MUSCLE HAEMORRHAGE [None]
